FAERS Safety Report 7045165 (Version 2)
Quarter: 2020Q3

REPORT INFORMATION
  Report Type: Report from Study
  Country: HU (occurrence: HU)
  Receive Date: 20090709
  Receipt Date: 20090720
  Transmission Date: 20201105
  Serious: Yes (Hospitalization, Other)
  Sender: FDA-Public Use
  Company Number: HU-WYE-H10012109

PATIENT
  Age: 59 Year
  Sex: Female
  Weight: 72 kg

DRUGS (7)
  1. METOTHYRIN [Concomitant]
     Indication: HYPERTHYROIDISM
     Dosage: NOT PROVIDED
     Route: 065
  2. CAPECITABINE. [Concomitant]
     Active Substance: CAPECITABINE
     Indication: BREAST CANCER METASTATIC
     Dosage: 2000 MG/NM DAILY FOR 14 DAYS/CYCLE
     Route: 048
     Dates: start: 20090416, end: 20090701
  3. CAPECITABINE. [Concomitant]
     Active Substance: CAPECITABINE
     Dosage: 2000 MG/M^2 ? FREQUENCY NOT SPECIFIED
     Route: 048
     Dates: start: 20090709
  4. CITALOPRAM HYDROBROMIDE. [Concomitant]
     Active Substance: CITALOPRAM HYDROBROMIDE
     Indication: HYPERTHYROIDISM
     Dosage: NOT PROVIDED
     Route: 065
  5. LAPATINIB [Suspect]
     Active Substance: LAPATINIB
     Indication: BREAST CANCER METASTATIC
     Route: 048
     Dates: start: 20090416, end: 20090701
  6. LAPATINIB [Suspect]
     Active Substance: LAPATINIB
     Dosage: 1250 MG ? FREQUENCY NOT SPECIFIED
     Route: 048
     Dates: start: 20090709
  7. BETALOC [Concomitant]
     Active Substance: METOPROLOL TARTRATE
     Indication: HYPERTHYROIDISM
     Dosage: NOT PROVIDED
     Route: 065

REACTIONS (2)
  - Arterial thrombosis [Recovered/Resolved]
  - Therapeutic embolisation [Recovered/Resolved]

NARRATIVE: CASE EVENT DATE: 20090630
